FAERS Safety Report 6036136-1 (Version None)
Quarter: 2009Q1

REPORT INFORMATION
  Report Type: 
  Country: None (occurrence: None)
  Receive Date: 20090113
  Receipt Date: 20090105
  Transmission Date: 20090719
  Serious: Yes (Hospitalization)
  Sender: FDA-Public Use
  Company Number: US-WYE-H03860108

PATIENT
  Age: 51 Year
  Sex: Male
  Weight: 45.4 kg

DRUGS (4)
  1. EFFEXOR XR [Suspect]
     Indication: DEPRESSION
     Dosage: UNKNOWN
     Route: 048
     Dates: start: 20080129, end: 20080204
  2. EFFEXOR XR [Suspect]
     Route: 045
     Dates: start: 20080205, end: 20080308
  3. ZYPREXA [Suspect]
     Dosage: UNKNOWN
     Dates: end: 20080308
  4. REMERON [Suspect]
     Dosage: UNKNOWN
     Dates: end: 20080308

REACTIONS (5)
  - ANOREXIA [None]
  - DRUG INEFFECTIVE [None]
  - HALLUCINATION [None]
  - INSOMNIA [None]
  - PSYCHOMOTOR HYPERACTIVITY [None]
